FAERS Safety Report 8875713 (Version 1)
Quarter: 2012Q4

REPORT INFORMATION
  Report Type: 
  Country: US (occurrence: US)
  Receive Date: 20121023
  Receipt Date: 20121023
  Transmission Date: 20130627
  Serious: No
  Sender: FDA-Public Use
  Company Number: US-ASTRAZENECA-2012SE76380

PATIENT
  Age: 63 Year
  Sex: Female
  Weight: 45.4 kg

DRUGS (7)
  1. SYMBICORT [Suspect]
     Indication: CHRONIC OBSTRUCTIVE PULMONARY DISEASE
     Dosage: 160 MCG, 2 PUFF,BID
     Route: 055
     Dates: start: 20121002, end: 20121002
  2. SYMBICORT [Suspect]
     Indication: EMPHYSEMA
     Dosage: 160 MCG, 2 PUFF,BID
     Route: 055
     Dates: start: 20121002, end: 20121002
  3. SPIRIVA [Concomitant]
     Indication: CHRONIC OBSTRUCTIVE PULMONARY DISEASE
  4. ADVAIR [Concomitant]
     Indication: CHRONIC OBSTRUCTIVE PULMONARY DISEASE
  5. NASONEX [Concomitant]
     Indication: HYPERSENSITIVITY
  6. PREDNISOLONE EYE DROPS [Concomitant]
     Indication: HYPERSENSITIVITY
  7. VITAMINS [Concomitant]

REACTIONS (2)
  - Tremor [Unknown]
  - Feeling abnormal [Unknown]
